FAERS Safety Report 5280499-1 (Version None)
Quarter: 2007Q1

REPORT INFORMATION
  Report Type: 
  Country: None (occurrence: None)
  Receive Date: 20070329
  Receipt Date: 20070320
  Transmission Date: 20070707
  Serious: No
  Sender: FDA-Public Use
  Company Number: CO-BAXTER-2007BH003055

PATIENT
  Age: 2 Year
  Sex: Male
  Weight: 13 kg

DRUGS (3)
  1. LACTATED RINGER'S [Suspect]
     Indication: FLUID REPLACEMENT
     Route: 040
     Dates: start: 20070312, end: 20070312
  2. METOCLOPRAMIDE HYDROCHLORIDE, UNSPECIFIED [Concomitant]
     Indication: DRUG USE FOR UNKNOWN INDICATION
     Route: 030
     Dates: start: 20070312, end: 20070312
  3. DIPIRONE [Concomitant]
     Indication: DRUG USE FOR UNKNOWN INDICATION
     Route: 042
     Dates: start: 20070312, end: 20070312

REACTIONS (3)
  - ERYTHEMA [None]
  - PRURITUS [None]
  - RASH GENERALISED [None]
